FAERS Safety Report 17660542 (Version 18)
Quarter: 2020Q4

REPORT INFORMATION
  Report Type: Spontaneous
  Country: US (occurrence: US)
  Receive Date: 20200413
  Receipt Date: 20201223
  Transmission Date: 20210113
  Serious: No
  Sender: FDA-Public Use
  Company Number: US-PFIZER INC-2020150618

PATIENT
  Age: 66 Year
  Sex: Male
  Weight: 107.95 kg

DRUGS (8)
  1. NICOTROL [Suspect]
     Active Substance: NICOTINE
     Dosage: 4 MG, DAILY THROUGH THE PIPE USING 12 CARTRIDGES A DAY
     Dates: start: 201812
  2. NICOTROL [Suspect]
     Active Substance: NICOTINE
     Dosage: 6-16 CARTRIDGES, DAILY (FOR 6 WEEKS)
     Dates: start: 20200803
  3. NICOTROL [Suspect]
     Active Substance: NICOTINE
     Dosage: UNK
  4. NICOTROL [Suspect]
     Active Substance: NICOTINE
     Dosage: 10 MG CARTRIDGES
  5. NICOTROL [Suspect]
     Active Substance: NICOTINE
     Dosage: 10 MG; USE UP TO TWELVE TO SIXTEEN CARTRIDGES DAILY
  6. NICOTROL [Suspect]
     Active Substance: NICOTINE
     Dosage: 16 PER DAY
  7. NICOTROL [Suspect]
     Active Substance: NICOTINE
     Indication: SMOKING CESSATION THERAPY
     Dosage: UP TO A DOZEN TIMES A DAY
  8. NICOTROL [Suspect]
     Active Substance: NICOTINE
     Dosage: 6-16 CARTRIDGES, DAILY (FOR 6 WEEKS)
     Dates: start: 20200624

REACTIONS (6)
  - Withdrawal syndrome [Unknown]
  - Nicotine dependence [Unknown]
  - Weight increased [Unknown]
  - Frustration tolerance decreased [Unknown]
  - Product prescribing error [Unknown]
  - Insomnia [Unknown]

NARRATIVE: CASE EVENT DATE: 20200624
